FAERS Safety Report 12774674 (Version 1)
Quarter: 2016Q3

REPORT INFORMATION
  Report Type: Spontaneous
  Country: US (occurrence: US)
  Receive Date: 20160923
  Receipt Date: 20160923
  Transmission Date: 20161109
  Serious: No
  Sender: FDA-Public Use
  Company Number: US-MYLANLABS-2015M1027629

PATIENT
  Age: 76 Year
  Sex: Male
  Weight: 88.44 kg

DRUGS (1)
  1. NITROGLYCERIN TRANSDERMAL DELIVERY SYSTEM [Suspect]
     Active Substance: NITROGLYCERIN
     Indication: CARDIAC DISORDER
     Dosage: 0.2 MG, QH, CHANGE DAILY
     Route: 062
     Dates: start: 201507, end: 201507

REACTIONS (4)
  - Application site discomfort [Not Recovered/Not Resolved]
  - Application site rash [Recovered/Resolved]
  - Application site pruritus [Not Recovered/Not Resolved]
  - Scab [Recovered/Resolved]

NARRATIVE: CASE EVENT DATE: 201507
